FAERS Safety Report 14326565 (Version 1)
Quarter: 2017Q4

REPORT INFORMATION
  Report Type: Spontaneous
  Country: TR (occurrence: TR)
  Receive Date: 20171227
  Receipt Date: 20171227
  Transmission Date: 20180321
  Serious: Yes (Death, Life-Threatening, Hospitalization, Other)
  Sender: FDA-Public Use
  Company Number: TR-MACLEODS PHARMACEUTICALS US LTD-MAC2017007166

PATIENT

DRUGS (5)
  1. PRAMIPEXOLE. [Suspect]
     Active Substance: PRAMIPEXOLE
     Indication: PARKINSON^S DISEASE
     Dosage: UNK
     Route: 065
  2. AMITRIPTYLLINE [Suspect]
     Active Substance: AMITRIPTYLINE
     Indication: PARKINSON^S DISEASE
     Dosage: UNK
     Route: 065
  3. LEVODOPA [Suspect]
     Active Substance: LEVODOPA
     Indication: PARKINSON^S DISEASE
     Dosage: UNK
     Route: 065
  4. PAROXETINE. [Suspect]
     Active Substance: PAROXETINE
     Indication: PARKINSON^S DISEASE
     Dosage: UNK
     Route: 065
  5. GABAPENTIN. [Suspect]
     Active Substance: GABAPENTIN
     Indication: PARKINSON^S DISEASE
     Dosage: UNK
     Route: 065

REACTIONS (7)
  - Altered state of consciousness [Fatal]
  - Hyperhidrosis [Fatal]
  - Muscle rigidity [Fatal]
  - Withdrawal syndrome [Fatal]
  - Neuroleptic malignant syndrome [Fatal]
  - Tremor [Fatal]
  - Mutism [Fatal]
